FAERS Safety Report 6765023-6 (Version None)
Quarter: 2010Q2

REPORT INFORMATION
  Report Type: 
  Country: None (occurrence: None)
  Receive Date: 20100609
  Receipt Date: 20100330
  Transmission Date: 20101027
  Serious: No
  Sender: FDA-Public Use
  Company Number: 2010007745

PATIENT
  Age: 8 Year
  Sex: Male
  Weight: 25.4014 kg

DRUGS (1)
  1. CHILDREN'S ZYRTEC ALLERGY [Suspect]
     Indication: SEASONAL ALLERGY
     Dosage: 5 MG 1 TABLET 1X DAY, ORAL
     Route: 048

REACTIONS (1)
  - ABDOMINAL PAIN UPPER [None]
